FAERS Safety Report 8563816-6 (Version None)
Quarter: 2012Q3

REPORT INFORMATION
  Report Type: 
  Country: None (occurrence: None)
  Receive Date: 20120727
  Receipt Date: 20120727
  Transmission Date: 20120928
  Serious: Yes (Hospitalization)
  Sender: FDA-Public Use
  Company Number: None

PATIENT
  Sex: Male
  Weight: 90.7194 kg

DRUGS (2)
  1. PEGASYS [Suspect]
     Indication: HEPATITIS C
     Dosage: 180MCG/0.5ML WEEKLY SQ
     Route: 058
     Dates: start: 20120524, end: 20120620
  2. RIBAVIRIN [Suspect]
     Indication: HEPATITIS C
     Dosage: 200MG 3 CAPSULES BID PO
     Route: 048
     Dates: start: 20120524, end: 20120620

REACTIONS (4)
  - HYPERSENSITIVITY [None]
  - ABSCESS [None]
  - STAPHYLOCOCCAL INFECTION [None]
  - IMMUNE SYSTEM DISORDER [None]
